FAERS Safety Report 6034597-5 (Version None)
Quarter: 2009Q1

REPORT INFORMATION
  Report Type: 
  Country: None (occurrence: None)
  Receive Date: 20090112
  Receipt Date: 20090107
  Transmission Date: 20090719
  Serious: Yes (Life-Threatening, Hospitalization, Disabling, Other)
  Sender: FDA-Public Use
  Company Number: US-MERCK-0812USA02188

PATIENT
  Age: 6 Year
  Sex: Male

DRUGS (7)
  1. SINGULAIR [Suspect]
     Indication: ASTHMA
     Route: 048
     Dates: start: 20070101, end: 20080901
  2. SINGULAIR [Suspect]
     Route: 048
     Dates: start: 20081119, end: 20081209
  3. ADVAIR DISKUS 250/50 [Concomitant]
     Route: 065
  4. PULMICORT-100 [Concomitant]
     Route: 065
  5. ALBUTEROL [Concomitant]
     Route: 065
  6. ZYRTEC [Concomitant]
     Route: 065
  7. BENADRYL [Concomitant]
     Route: 065

REACTIONS (3)
  - ASTHMA [None]
  - MOOD ALTERED [None]
  - SUICIDAL IDEATION [None]
